FAERS Safety Report 7102835-3 (Version None)
Quarter: 2010Q4

REPORT INFORMATION
  Report Type: 
  Country: None (occurrence: None)
  Receive Date: 20101115
  Receipt Date: 20101110
  Transmission Date: 20110411
  Serious: Yes (Hospitalization)
  Sender: FDA-Public Use
  Company Number: US-GILEAD-2010-0032803

PATIENT
  Sex: Male

DRUGS (12)
  1. LETAIRIS [Suspect]
     Indication: PULMONARY ARTERIAL HYPERTENSION
     Route: 048
     Dates: start: 20100701, end: 20101009
  2. BUMEX [Concomitant]
  3. PROPRANOLOL-HCTZ [Concomitant]
  4. DIGOXIN [Concomitant]
  5. METOLAZONE [Concomitant]
  6. OMEPRAZOLE [Concomitant]
  7. HUMULIN R [Concomitant]
  8. LEXAPRO [Concomitant]
  9. ADCIRCA [Concomitant]
  10. ZOLPIDEM [Concomitant]
  11. PROSCAR [Concomitant]
  12. POTASSIUM CHLORIDE [Concomitant]

REACTIONS (1)
  - RECTAL HAEMORRHAGE [None]
